FAERS Safety Report 25519006 (Version 2)
Quarter: 2025Q4

REPORT INFORMATION
  Report Type: Spontaneous
  Country: US (occurrence: US)
  Receive Date: 20250704
  Receipt Date: 20251007
  Transmission Date: 20260118
  Serious: Yes (Hospitalization)
  Sender: SAREPTA THERAPEUTICS
  Company Number: US-SAREPTA THERAPEUTICS INC.-SRP2025-006185

PATIENT
  Age: 24 Year
  Sex: Male

DRUGS (2)
  1. VYONDYS 53 [Suspect]
     Active Substance: GOLODIRSEN
     Indication: Product used for unknown indication
     Dosage: 2450 MILLIGRAM, WEEKLY
     Route: 042
     Dates: end: 20250430
  2. VYONDYS 53 [Suspect]
     Active Substance: GOLODIRSEN
     Dosage: 2450 MILLIGRAM, WEEKLY
     Route: 042
     Dates: start: 20250523

REACTIONS (3)
  - Seizure [Unknown]
  - Muscle contracture [Unknown]
  - Skin discolouration [Unknown]
